FAERS Safety Report 16974781 (Version 1)
Quarter: 2019Q4

REPORT INFORMATION
  Report Type: Spontaneous
  Country: DE (occurrence: DE)
  Receive Date: 20191030
  Receipt Date: 20191030
  Transmission Date: 20200122
  Serious: Yes (Other)
  Sender: FDA-Public Use
  Company Number: DE-DRREDDYS-GER/GER/19/0115497

PATIENT
  Age: 1 Day
  Sex: Male
  Weight: 4.19 kg

DRUGS (4)
  1. FLUOXETINE [Suspect]
     Active Substance: FLUOXETINE HYDROCHLORIDE
     Indication: PRODUCT USED FOR UNKNOWN INDICATION
     Dosage: 40 [MG/D (BIS 20 MG/D) ]/ 20 MG/D UNTIL GESTATIONAL WEEK 36, THEN 40 MG/D.
     Route: 064
     Dates: start: 20181031, end: 20190728
  2. TAVOR [Concomitant]
     Indication: PRODUCT USED FOR UNKNOWN INDICATION
     Dosage: APPROXIMATELY ONCE THE WEEK
     Route: 064
  3. ANAFRANIL [Suspect]
     Active Substance: CLOMIPRAMINE HYDROCHLORIDE
     Indication: PRODUCT USED FOR UNKNOWN INDICATION
     Dosage: 75 [MG/D ]
     Route: 064
     Dates: start: 20181031, end: 20190728
  4. CHLORPROTHIXENE [Suspect]
     Active Substance: CHLORPROTHIXENE
     Indication: PRODUCT USED FOR UNKNOWN INDICATION
     Dosage: 75 [MG/D (BIS 50 MG/D) ]
     Route: 064
     Dates: start: 20181031, end: 20190728

REACTIONS (3)
  - Drug withdrawal syndrome [Recovered/Resolved]
  - Foetal exposure during pregnancy [Unknown]
  - Large for dates baby [Unknown]

NARRATIVE: CASE EVENT DATE: 20190728
